FAERS Safety Report 7121772-1 (Version None)
Quarter: 2010Q4

REPORT INFORMATION
  Report Type: 
  Country: None (occurrence: None)
  Receive Date: 20101124
  Receipt Date: 20101118
  Transmission Date: 20110411
  Serious: No
  Sender: FDA-Public Use
  Company Number: US-PFIZER INC-2010152798

PATIENT
  Sex: Female
  Weight: 56.7 kg

DRUGS (4)
  1. PREMPRO [Suspect]
     Indication: VAGINAL HAEMORRHAGE
     Dosage: UNK MG, UNK
     Route: 048
     Dates: start: 19990101
  2. SIMVASTATIN [Suspect]
     Indication: BLOOD CHOLESTEROL INCREASED
     Dosage: 20 MG, UNK
  3. LISINOPRIL [Concomitant]
     Indication: HYPERTENSION
     Dosage: 20 MG, UNK
  4. LOVAZA [Concomitant]
     Indication: BLOOD CHOLESTEROL ABNORMAL
     Dosage: 1 G, UNK
     Route: 048

REACTIONS (5)
  - BACK PAIN [None]
  - BURNING SENSATION [None]
  - INSOMNIA [None]
  - OSTEOPENIA [None]
  - PAIN IN EXTREMITY [None]
